FAERS Safety Report 6260921-4 (Version None)
Quarter: 2009Q3

REPORT INFORMATION
  Report Type: 
  Country: None (occurrence: None)
  Receive Date: 20090709
  Receipt Date: 20071211
  Transmission Date: 20100115
  Serious: Yes (Other)
  Sender: FDA-Public Use
  Company Number: US-ASTRAZENECA-2006UW25204

PATIENT
  Age: 265 Month
  Sex: Male
  Weight: 95.3 kg

DRUGS (25)
  1. SEROQUEL [Suspect]
     Indication: SCHIZOPHRENIA
     Route: 048
     Dates: start: 19980101
  2. SEROQUEL [Suspect]
     Indication: DEPRESSION
     Route: 048
     Dates: start: 19980101
  3. SEROQUEL [Suspect]
     Indication: HALLUCINATION
     Route: 048
     Dates: start: 19980101
  4. SEROQUEL [Suspect]
     Indication: PSYCHOTIC DISORDER
     Route: 048
     Dates: start: 19980101
  5. SEROQUEL [Suspect]
     Indication: SLEEP DISORDER
     Route: 048
     Dates: start: 19980101
  6. SEROQUEL [Suspect]
     Indication: PERSECUTORY DELUSION
     Route: 048
     Dates: start: 19980101
  7. SEROQUEL [Suspect]
     Dosage: 400 - 1200 MG
     Route: 048
     Dates: start: 20000319
  8. SEROQUEL [Suspect]
     Dosage: 400 - 1200 MG
     Route: 048
     Dates: start: 20000319
  9. SEROQUEL [Suspect]
     Dosage: 400 - 1200 MG
     Route: 048
     Dates: start: 20000319
  10. SEROQUEL [Suspect]
     Dosage: 400 - 1200 MG
     Route: 048
     Dates: start: 20000319
  11. SEROQUEL [Suspect]
     Dosage: 400 - 1200 MG
     Route: 048
     Dates: start: 20000319
  12. SEROQUEL [Suspect]
     Dosage: 400 - 1200 MG
     Route: 048
     Dates: start: 20000319
  13. GEODON [Concomitant]
     Dates: start: 20020101
  14. HALDOL [Concomitant]
     Dates: start: 20030101
  15. NAVANE [Concomitant]
     Dates: start: 20000101
  16. RISPERDAL [Concomitant]
     Dates: start: 19970101, end: 19980101
  17. ZYPREXA [Concomitant]
     Dates: start: 19980101, end: 20000101
  18. ABILIFY [Concomitant]
     Dates: start: 20050801
  19. COGENTIN [Concomitant]
  20. PROLIXIN [Concomitant]
  21. LANTUS [Concomitant]
  22. PRAVACHOL [Concomitant]
  23. LEXAPRO [Concomitant]
  24. NEXIUM [Concomitant]
  25. GLUCOPHAGE [Concomitant]

REACTIONS (6)
  - DIABETIC KETOACIDOSIS [None]
  - DIABETIC RETINOPATHY [None]
  - GLYCOSURIA [None]
  - HYPERGLYCAEMIA [None]
  - SEDATION [None]
  - TYPE 2 DIABETES MELLITUS [None]
